FAERS Safety Report 14201740 (Version 2)
Quarter: 2017Q4

REPORT INFORMATION
  Report Type: Report from Study
  Country: US (occurrence: US)
  Receive Date: 20171117
  Receipt Date: 20171129
  Transmission Date: 20180321
  Serious: Yes (Death, Hospitalization)
  Sender: FDA-Public Use
  Company Number: US-EXELIXIS-CABO-17010026

PATIENT
  Sex: Male

DRUGS (10)
  1. ZOFRAN [Concomitant]
     Active Substance: ONDANSETRON HYDROCHLORIDE
  2. HUMALOG [Concomitant]
     Active Substance: INSULIN LISPRO
  3. LANTUS [Concomitant]
     Active Substance: INSULIN GLARGINE
  4. COMETRIQ [Suspect]
     Active Substance: CABOZANTINIB S-MALATE
     Indication: METASTATIC OCULAR MELANOMA
     Dosage: 100 MG, QD
     Route: 048
     Dates: start: 201706
  5. NORCO [Concomitant]
     Active Substance: ACETAMINOPHEN\HYDROCODONE BITARTRATE
  6. MULTIVITAMIN [Concomitant]
     Active Substance: VITAMINS
  7. LANSOPRAZOLE. [Concomitant]
     Active Substance: LANSOPRAZOLE
  8. NOVOLOG [Concomitant]
     Active Substance: INSULIN ASPART
  9. GLUCAGON EMERGENCY KIT [Concomitant]
     Active Substance: GLUCAGON
  10. DRONABINOL. [Concomitant]
     Active Substance: DRONABINOL

REACTIONS (3)
  - Haemorrhage [Unknown]
  - Malignant neoplasm progression [Fatal]
  - Off label use [Unknown]
